FAERS Safety Report 13380873 (Version 1)
Quarter: 2017Q1

REPORT INFORMATION
  Report Type: Spontaneous
  Country: IT (occurrence: IT)
  Receive Date: 20170329
  Receipt Date: 20170329
  Transmission Date: 20170429
  Serious: Yes (Hospitalization, Other)
  Sender: FDA-Public Use
  Company Number: IT-SUN PHARMACEUTICAL INDUSTRIES LTD-2017RR-136785

PATIENT
  Age: 83 Year
  Sex: Female

DRUGS (4)
  1. VITAMIN D [Concomitant]
     Active Substance: CHOLECALCIFEROL
     Dosage: 400 IU, DAILY
     Route: 048
     Dates: start: 2010
  2. VITAMIN D [Concomitant]
     Active Substance: CHOLECALCIFEROL
     Indication: PROPHYLAXIS
     Dosage: 10000 IU, UNK
     Route: 048
  3. CALCIUM [Concomitant]
     Active Substance: CALCIUM
     Indication: PRODUCT USED FOR UNKNOWN INDICATION
     Dosage: 600 MG, DAILY
     Route: 048
     Dates: start: 2010
  4. ALENDRONIC ACID [Suspect]
     Active Substance: ALENDRONIC ACID
     Indication: PROPHYLAXIS
     Dosage: 70 MG, 1/WEEK
     Route: 048
     Dates: start: 2002, end: 201305

REACTIONS (2)
  - Vitamin D decreased [Recovered/Resolved]
  - Periprosthetic fracture [Recovered/Resolved]

NARRATIVE: CASE EVENT DATE: 201305
